FAERS Safety Report 21212576 (Version 1)
Quarter: 2022Q3

REPORT INFORMATION
  Report Type: Spontaneous
  Country: KR (occurrence: KR)
  Receive Date: 20220815
  Receipt Date: 20220815
  Transmission Date: 20221027
  Serious: Yes (Other)
  Sender: FDA-Public Use
  Company Number: KR-JUBILANT CADISTA PHARMACEUTICALS-2022JUB00217

PATIENT
  Age: 18 Year
  Sex: Female

DRUGS (1)
  1. METHYLPREDNISOLONE [Suspect]
     Active Substance: METHYLPREDNISOLONE
     Indication: Multiple sclerosis
     Dosage: 1 G, 1X/DAY
     Route: 042

REACTIONS (1)
  - Bradycardia [Recovered/Resolved]
